FAERS Safety Report 9177300 (Version 2)
Quarter: 2013Q2

REPORT INFORMATION
  Report Type: Spontaneous
  Country: US (occurrence: US)
  Receive Date: 20130321
  Receipt Date: 20130516
  Transmission Date: 20140414
  Serious: Yes (Other)
  Sender: FDA-Public Use
  Company Number: US-PERRIGO-13US002724

PATIENT
  Age: 29 Year
  Sex: Male
  Weight: 104.31 kg

DRUGS (1)
  1. NAPROXEN SODIUM-PSEUDOEPHEDRINE HYDROCHLORIDE ER 253 [Suspect]
     Indication: SINUS CONGESTION
     Dosage: 2 TABLETS PRN
     Route: 048
     Dates: start: 2008, end: 20130304

REACTIONS (6)
  - Swelling face [Recovered/Resolved]
  - Pruritus [Not Recovered/Not Resolved]
  - Local swelling [Recovered/Resolved]
  - Rash [Not Recovered/Not Resolved]
  - Contusion [Recovered/Resolved]
  - Pain [Not Recovered/Not Resolved]
